FAERS Safety Report 8181618-X (Version None)
Quarter: 2012Q1

REPORT INFORMATION
  Report Type: 
  Country: None (occurrence: None)
  Receive Date: 20120302
  Receipt Date: 20120222
  Transmission Date: 20120608
  Serious: Yes (Hospitalization)
  Sender: FDA-Public Use
  Company Number: RU-ASTRAZENECA-2012SE13119

PATIENT
  Age: 63 Year
  Sex: Female

DRUGS (3)
  1. SEROQUEL [Suspect]
     Route: 048
  2. PHENAZEPAM [Concomitant]
  3. CYCLODOL [Concomitant]

REACTIONS (3)
  - SPEECH DISORDER [None]
  - MUSCLE TIGHTNESS [None]
  - PAIN IN JAW [None]
